FAERS Safety Report 20338825 (Version 4)
Quarter: 2022Q3

REPORT INFORMATION
  Report Type: Report from Study
  Country: KR (occurrence: KR)
  Receive Date: 20220116
  Receipt Date: 20220830
  Transmission Date: 20221027
  Serious: Yes (Hospitalization)
  Sender: FDA-Public Use
  Company Number: KR-ABBVIE-21K-090-4099302-00

PATIENT
  Sex: Female
  Weight: 65 kg

DRUGS (19)
  1. SKYRIZI [Suspect]
     Active Substance: RISANKIZUMAB-RZAA
     Indication: Psoriasis
     Route: 058
     Dates: start: 20210311, end: 20210311
  2. SKYRIZI [Suspect]
     Active Substance: RISANKIZUMAB-RZAA
     Route: 058
     Dates: start: 20210408, end: 20210408
  3. SKYRIZI [Suspect]
     Active Substance: RISANKIZUMAB-RZAA
     Route: 058
     Dates: start: 20210701, end: 20210701
  4. SKYRIZI [Suspect]
     Active Substance: RISANKIZUMAB-RZAA
     Route: 058
     Dates: start: 20210927, end: 20210927
  5. SKYRIZI [Suspect]
     Active Substance: RISANKIZUMAB-RZAA
     Route: 058
     Dates: start: 20211220, end: 20211220
  6. SKYRIZI [Suspect]
     Active Substance: RISANKIZUMAB-RZAA
     Route: 058
     Dates: start: 20220317, end: 20220317
  7. BETAMETHASONE DIPROPIONATE\CALCIPOTRIENE HYDRATE [Concomitant]
     Active Substance: BETAMETHASONE DIPROPIONATE\CALCIPOTRIENE HYDRATE
     Indication: Psoriasis
     Dosage: UNIT DOSE : UK, UNIT : G?APPLICATOR
     Route: 061
     Dates: start: 20200909, end: 20210505
  8. BETAMETHASONE DIPROPIONATE\CALCIPOTRIENE HYDRATE [Concomitant]
     Active Substance: BETAMETHASONE DIPROPIONATE\CALCIPOTRIENE HYDRATE
     Route: 061
     Dates: start: 20211220
  9. ESPERSON [Concomitant]
     Indication: Psoriasis
     Dosage: LOTION 0.25%?UNIT DOSE: UK, UNIT : ML
     Route: 061
     Dates: start: 20200810, end: 20210731
  10. HIGHROSONE [Concomitant]
     Indication: Psoriasis
     Dosage: UNIT DOSE : UK, UNIT : G
     Route: 061
     Dates: start: 20200810, end: 20210505
  11. ADIPAM [Concomitant]
     Indication: Psoriasis
     Dosage: PRO RE NATA
     Route: 048
     Dates: start: 20201130, end: 20210505
  12. TOZINAMERAN [Concomitant]
     Active Substance: TOZINAMERAN
     Indication: COVID-19 immunisation
     Route: 030
     Dates: start: 20210729, end: 20210729
  13. TOZINAMERAN [Concomitant]
     Active Substance: TOZINAMERAN
     Route: 030
     Dates: start: 20210909, end: 20210909
  14. TOZINAMERAN [Concomitant]
     Active Substance: TOZINAMERAN
     Route: 030
     Dates: start: 20220110, end: 20220110
  15. LIDOCAINE HYDROCHLORIDE [Concomitant]
     Active Substance: LIDOCAINE HYDROCHLORIDE
     Indication: Biopsy
     Route: 030
     Dates: start: 20220104, end: 20220104
  16. GASTER [Concomitant]
     Active Substance: FAMOTIDINE
     Indication: Gastrointestinal disorder prophylaxis
     Route: 042
     Dates: start: 20220104, end: 20220104
  17. SODIUM BICARBONATE HUONS [Concomitant]
     Indication: Electrolyte imbalance
     Route: 042
     Dates: start: 20220104, end: 20220104
  18. NAPROXEN [Concomitant]
     Active Substance: NAPROXEN
     Indication: Procedural pain
     Route: 048
     Dates: start: 20220104
  19. PANTOPRAZOLE SODIUM [Concomitant]
     Active Substance: PANTOPRAZOLE SODIUM
     Indication: Gastritis
     Route: 048
     Dates: start: 20220104

REACTIONS (2)
  - Synovial cyst [Recovered/Resolved]
  - Vitamin D deficiency [Recovering/Resolving]

NARRATIVE: CASE EVENT DATE: 20210329
